FAERS Safety Report 15206873 (Version 1)
Quarter: 2018Q3

REPORT INFORMATION
  Report Type: Spontaneous
  Country: US (occurrence: US)
  Receive Date: 20180727
  Receipt Date: 20180727
  Transmission Date: 20181010
  Serious: Yes (Congenital Anomaly, Other)
  Sender: FDA-Public Use
  Company Number: US-AUROBINDO-AUR-APL-2018-036381

PATIENT
  Age: 39 Week
  Sex: Male
  Weight: 3.18 kg

DRUGS (2)
  1. ZONISAMIDE. [Suspect]
     Active Substance: ZONISAMIDE
     Indication: EPILEPSY
     Dosage: 300 MILLIGRAM, ONCE A DAY
     Route: 065
     Dates: start: 20170101, end: 20171004
  2. LAMOTRIGINE. [Suspect]
     Active Substance: LAMOTRIGINE
     Indication: EPILEPSY
     Dosage: 600 MILLIGRAM, ONCE A DAY
     Route: 065
     Dates: start: 20170101, end: 20171004

REACTIONS (2)
  - Foetal exposure during pregnancy [Unknown]
  - Hypospadias [Recovered/Resolved]

NARRATIVE: CASE EVENT DATE: 20171006
